FAERS Safety Report 11374766 (Version 2)
Quarter: 2015Q4

REPORT INFORMATION
  Report Type: Spontaneous
  Country: US (occurrence: US)
  Receive Date: 20150813
  Receipt Date: 20151119
  Transmission Date: 20160304
  Serious: No
  Sender: FDA-Public Use
  Company Number: US-LUPIN PHARMACEUTICALS INC.-E2B_00003887

PATIENT
  Age: 51 Year
  Sex: Female
  Weight: 79.45 kg

DRUGS (3)
  1. SERTRALINE TABLETS USP 50 MG [Suspect]
     Active Substance: SERTRALINE HYDROCHLORIDE
     Indication: ANXIETY
     Dosage: 150 MG (100 MG IN THE MORNING AND 50 MG AT BEDTIME)
     Dates: start: 201505
  2. SERTRALINE TABLETS USP 50 MG [Suspect]
     Active Substance: SERTRALINE HYDROCHLORIDE
     Dosage: 200 MG (100 MG IN THE MORNING AND 100 MG AT BEDTIME)
     Dates: end: 201506
  3. PRAVASTATIN [Concomitant]
     Active Substance: PRAVASTATIN\PRAVASTATIN SODIUM
     Indication: PRODUCT USED FOR UNKNOWN INDICATION

REACTIONS (5)
  - Anxiety [Recovered/Resolved]
  - Paraesthesia [Unknown]
  - Drug ineffective [Recovered/Resolved]
  - Product substitution issue [Recovered/Resolved]
  - Drug withdrawal syndrome [Unknown]

NARRATIVE: CASE EVENT DATE: 201505
